FAERS Safety Report 13989661 (Version 2)
Quarter: 2017Q4

REPORT INFORMATION
  Report Type: Spontaneous
  Country: US (occurrence: US)
  Receive Date: 20170920
  Receipt Date: 20171020
  Transmission Date: 20180321
  Serious: Yes (Other)
  Sender: FDA-Public Use
  Company Number: PHEH2017US029542

PATIENT
  Age: 53 Year
  Sex: Female

DRUGS (3)
  1. TIMOLOL. [Suspect]
     Active Substance: TIMOLOL
     Indication: POSTOPERATIVE CARE
     Dosage: 1 GTT, UNK
     Route: 047
     Dates: start: 20170828
  2. CIPROFLOXACIN. [Concomitant]
     Active Substance: CIPROFLOXACIN
     Indication: PRODUCT USED FOR UNKNOWN INDICATION
     Dosage: UNK UNK, QID
     Route: 065
  3. DUREZOL [Concomitant]
     Active Substance: DIFLUPREDNATE
     Indication: PRODUCT USED FOR UNKNOWN INDICATION
     Dosage: UNK UNK, BID
     Route: 065

REACTIONS (5)
  - Vitreal cells [Not Recovered/Not Resolved]
  - Vision blurred [Not Recovered/Not Resolved]
  - Eye pain [Not Recovered/Not Resolved]
  - Anterior chamber fibrin [Not Recovered/Not Resolved]
  - Iridocyclitis [Not Recovered/Not Resolved]

NARRATIVE: CASE EVENT DATE: 20170828
